FAERS Safety Report 8941774 (Version 3)
Quarter: 2013Q1

REPORT INFORMATION
  Report Type: Spontaneous
  Country: IE (occurrence: IE)
  Receive Date: 20121203
  Receipt Date: 20130122
  Transmission Date: 20140127
  Serious: Yes (Hospitalization, Other)
  Sender: FDA-Public Use
  Company Number: IE-ASTRAZENECA-2012SE90031

PATIENT
  Age: 117 Day
  Sex: Female

DRUGS (1)
  1. SYNAGIS [Suspect]
     Indication: PREMATURE BABY
     Route: 030
     Dates: start: 20121024

REACTIONS (7)
  - Purpura [Recovered/Resolved]
  - Petechiae [Recovered/Resolved]
  - Vasculitis [Unknown]
  - Malaise [Recovered/Resolved]
  - Vomiting [Recovered/Resolved]
  - Glassy eyes [Recovered/Resolved]
  - Pyrexia [Recovered/Resolved]
